FAERS Safety Report 23266973 (Version 1)
Quarter: 2023Q4

REPORT INFORMATION
  Report Type: Report from Study
  Country: US (occurrence: US)
  Receive Date: 20231206
  Receipt Date: 20231206
  Transmission Date: 20240110
  Serious: Yes (Other)
  Sender: FDA-Public Use
  Company Number: US-OTSUKA PHARMACEUTICAL NETHERLANDS B.V.-AUR-004717

PATIENT
  Age: 30 Year
  Sex: Male

DRUGS (2)
  1. LUPKYNIS [Suspect]
     Active Substance: VOCLOSPORIN
     Indication: Product used for unknown indication
     Dosage: 23.7 MILLIGRAM, BID
     Route: 048
     Dates: start: 20221207
  2. CELLCEPT [Concomitant]
     Active Substance: MYCOPHENOLATE MOFETIL
     Indication: Product used for unknown indication
     Dosage: UNK

REACTIONS (5)
  - Urine albumin/creatinine ratio increased [Unknown]
  - Systemic lupus erythematosus [Unknown]
  - Hypertension [Unknown]
  - Urine protein/creatinine ratio abnormal [Unknown]
  - Complement factor C3 decreased [Unknown]

NARRATIVE: CASE EVENT DATE: 20230724
